FAERS Safety Report 9486526 (Version 1)
Quarter: 2013Q3

REPORT INFORMATION
  Report Type: Spontaneous
  Country: AU (occurrence: AU)
  Receive Date: 20130829
  Receipt Date: 20130829
  Transmission Date: 20140515
  Serious: Yes (Death, Other)
  Sender: FDA-Public Use
  Company Number: AU-SANOFI-AVENTIS-2013SA079235

PATIENT
  Age: 24 Year
  Sex: Female

DRUGS (3)
  1. STILNOX [Suspect]
     Indication: PRODUCT USED FOR UNKNOWN INDICATION
     Route: 065
     Dates: end: 201012
  2. CYMBALTA [Suspect]
     Indication: PRODUCT USED FOR UNKNOWN INDICATION
     Route: 065
     Dates: end: 201012
  3. ALCOHOL [Concomitant]

REACTIONS (3)
  - Multiple injuries [Fatal]
  - Haemorrhage [Fatal]
  - Fall [Unknown]
